FAERS Safety Report 20758639 (Version 2)
Quarter: 2022Q2

REPORT INFORMATION
  Report Type: Spontaneous
  Country: US (occurrence: TR)
  Receive Date: 20220427
  Receipt Date: 20220511
  Transmission Date: 20220721
  Serious: Yes (Death, Hospitalization, Other)
  Sender: FDA-Public Use
  Company Number: US-JNJFOC-20220442267

PATIENT
  Age: 78 Year
  Sex: Male
  Weight: 55.5 kg

DRUGS (1)
  1. AMIVANTAMAB [Suspect]
     Active Substance: AMIVANTAMAB
     Indication: Non-small cell lung cancer
     Dosage: 350 MG 250 SF?FIRST TOW HOURS 50 ML/HR?LAST 2 HOURS 75 ML/HR
     Route: 042
     Dates: start: 20211227

REACTIONS (13)
  - COVID-19 [Fatal]
  - Delirium [Unknown]
  - Organ failure [Unknown]
  - Urinary tract infection [Not Recovered/Not Resolved]
  - Muscle spasms [Not Recovered/Not Resolved]
  - Hospitalisation [Unknown]
  - Cystitis [Unknown]
  - General physical health deterioration [Unknown]
  - Prostatic disorder [Unknown]
  - Pain [Unknown]
  - White blood cell count decreased [Unknown]
  - Infection [Unknown]
  - Decreased immune responsiveness [Unknown]

NARRATIVE: CASE EVENT DATE: 20220120
